FAERS Safety Report 19447067 (Version 2)
Quarter: 2021Q2

REPORT INFORMATION
  Report Type: Report from Study
  Country: US (occurrence: US)
  Receive Date: 20210622
  Receipt Date: 20210628
  Transmission Date: 20210717
  Serious: Yes (Other)
  Sender: FDA-Public Use
  Company Number: NVSC2021US131553

PATIENT
  Age: 71 Year
  Sex: Female

DRUGS (2)
  1. ENTRESTO [Suspect]
     Active Substance: SACUBITRIL\VALSARTAN
     Indication: CARDIAC FAILURE CONGESTIVE
     Dosage: 100 MG(49/51), BID
     Route: 065
     Dates: start: 20210515
  2. FARXIGA [Concomitant]
     Active Substance: DAPAGLIFLOZIN PROPANEDIOL
     Indication: RENAL DISORDER
     Dosage: UNK
     Route: 065

REACTIONS (3)
  - Dyspnoea [Recovering/Resolving]
  - Pruritus [Recovering/Resolving]
  - Renal impairment [Unknown]

NARRATIVE: CASE EVENT DATE: 202105
